FAERS Safety Report 6427113-7 (Version None)
Quarter: 2009Q4

REPORT INFORMATION
  Report Type: 
  Country: None (occurrence: None)
  Receive Date: 20091104
  Receipt Date: 20091029
  Transmission Date: 20100525
  Serious: Yes (Hospitalization)
  Sender: FDA-Public Use
  Company Number: DE-WYE-G04766609

PATIENT
  Age: 77 Year
  Sex: Female
  Weight: 62 kg

DRUGS (17)
  1. TAZOBAC EF [Suspect]
     Indication: URINARY TRACT INFECTION
     Route: 042
     Dates: start: 20090519, end: 20090525
  2. CLONT [Suspect]
     Indication: PNEUMONIA ASPIRATION
     Dosage: UNKNOWN
     Route: 048
     Dates: start: 20090407, end: 20090424
  3. ROCEPHIN [Suspect]
     Indication: PNEUMONIA ASPIRATION
     Dosage: UNKNOWN
     Route: 042
     Dates: start: 20090407, end: 20090424
  4. VAGIMID [Suspect]
     Indication: URINARY TRACT INFECTION
     Route: 048
     Dates: start: 20090529
  5. ACETYLSALICYLIC ACID [Concomitant]
     Indication: ANGINA PECTORIS
     Route: 048
     Dates: end: 20090427
  6. BELOC ZOK [Concomitant]
     Indication: CORONARY ARTERY DISEASE
     Route: 048
     Dates: end: 20090427
  7. CLEXANE [Concomitant]
     Indication: ANGINA PECTORIS
     Route: 058
     Dates: start: 20090401, end: 20090519
  8. DIGITOXIN INJ [Concomitant]
     Indication: CARDIAC FAILURE
     Route: 048
     Dates: start: 20090519
  9. FRESUBIN [Concomitant]
     Indication: ENTERAL NUTRITION
     Dates: start: 20090401
  10. ISCOVER [Concomitant]
     Indication: ISCHAEMIC HEART DISEASE PROPHYLAXIS
     Route: 048
     Dates: start: 20090520
  11. MADOPAR [Concomitant]
     Indication: PARKINSON'S DISEASE
     Route: 048
  12. METOCLOPRAMIDE [Concomitant]
     Route: 048
     Dates: start: 20090427, end: 20090501
  13. NAFTIFINE [Concomitant]
     Route: 048
     Dates: start: 20060101, end: 20090501
  14. NOVALGIN [Concomitant]
     Indication: PAIN
     Route: 048
     Dates: start: 20090427
  15. TEVETEN [Concomitant]
     Route: 048
     Dates: start: 20060101, end: 20090501
  16. PANTOPRAZOLE [Suspect]
     Indication: GASTROOESOPHAGEAL REFLUX PROPHYLAXIS
     Route: 048
  17. CIPRO [Suspect]
     Indication: URINARY TRACT INFECTION
     Route: 048
     Dates: start: 20090515, end: 20090518

REACTIONS (2)
  - CLOSTRIDIUM DIFFICILE COLITIS [None]
  - HYPOKALAEMIA [None]
